FAERS Safety Report 4391084-8 (Version None)
Quarter: 2004Q2

REPORT INFORMATION
  Report Type: 
  Country: None (occurrence: None)
  Receive Date: 20040621
  Receipt Date: 20031121
  Transmission Date: 20050107
  Serious: Yes (Death, Other)
  Sender: FDA-Public Use
  Company Number: USA-2003-0010964

PATIENT
  Age: 21 Year
  Sex: Male
  Weight: 78.2 kg

DRUGS (5)
  1. OXYCONTIN [Suspect]
  2. ALCOHOL (ETHANOL) [Suspect]
  3. SERTRALINE (SERTRALINE) [Suspect]
  4. ACETAMINOPHEN [Suspect]
  5. CAFFEINE (CAFFEINE) [Suspect]

REACTIONS (3)
  - ACCIDENTAL OVERDOSE [None]
  - DRUG ABUSER [None]
  - MULTIPLE DRUG OVERDOSE [None]
